FAERS Safety Report 23898510 (Version 2)
Quarter: 2024Q2

REPORT INFORMATION
  Report Type: Report from Study
  Country: US (occurrence: US)
  Receive Date: 20240525
  Receipt Date: 20240620
  Transmission Date: 20240716
  Serious: Yes (Other)
  Sender: FDA-Public Use
  Company Number: US-ABBVIE-5767002

PATIENT
  Sex: Male

DRUGS (1)
  1. HUMIRA [Suspect]
     Active Substance: ADALIMUMAB
     Indication: Product used for unknown indication
     Route: 058
     Dates: start: 202312

REACTIONS (7)
  - Deafness [Unknown]
  - Pain in extremity [Not Recovered/Not Resolved]
  - Injection site haemorrhage [Recovering/Resolving]
  - Dysstasia [Not Recovered/Not Resolved]
  - Dyspnoea exertional [Unknown]
  - Burning sensation [Not Recovered/Not Resolved]
  - Hyperhidrosis [Recovered/Resolved]
